FAERS Safety Report 7902342-1 (Version None)
Quarter: 2011Q4

REPORT INFORMATION
  Report Type: 
  Country: None (occurrence: None)
  Receive Date: 20111108
  Receipt Date: 20111101
  Transmission Date: 20120403
  Serious: Yes (Hospitalization, Other)
  Sender: FDA-Public Use
  Company Number: NL-B.I. PHARMACEUTICALS,INC./RIDGEFIELD-2011-NL-00340NL

PATIENT
  Sex: Female
  Weight: 59 kg

DRUGS (3)
  1. PERSANTIN [Suspect]
     Dosage: 200 MG
     Dates: start: 20110603, end: 20110610
  2. PERSANTIN [Suspect]
     Dosage: 400 MG
     Dates: start: 20110611, end: 20110617
  3. SIMVASTATIN [Suspect]
     Indication: HYPERCHOLESTEROLAEMIA
     Dosage: 40 MG
     Dates: start: 20110530, end: 20110614

REACTIONS (5)
  - ABDOMINAL DISCOMFORT [None]
  - DIVERTICULITIS [None]
  - HEPATITIS [None]
  - ABDOMINAL PAIN UPPER [None]
  - CHEST DISCOMFORT [None]
